FAERS Safety Report 9975711 (Version 1)
Quarter: 2014Q1

REPORT INFORMATION
  Report Type: Other
  Country: TW (occurrence: TW)
  Receive Date: 20140306
  Receipt Date: 20140306
  Transmission Date: 20141002
  Serious: Yes (Other)
  Sender: FDA-Public Use
  Company Number: TW-BRISTOL-MYERS SQUIBB COMPANY-20351664

PATIENT
  Age: 74 Year
  Sex: Male

DRUGS (1)
  1. ARIPIPRAZOLE [Suspect]
     Indication: BIPOLAR I DISORDER

REACTIONS (2)
  - Mania [Unknown]
  - Therapeutic response unexpected [Unknown]
